FAERS Safety Report 5328434-1 (Version None)
Quarter: 2007Q2

REPORT INFORMATION
  Report Type: 
  Country: None (occurrence: None)
  Receive Date: 20070516
  Receipt Date: 20070516
  Transmission Date: 20071010
  Serious: Yes (Hospitalization)
  Sender: FDA-Public Use
  Company Number: None

PATIENT
  Age: 66 Year
  Sex: Male
  Weight: 72 kg

DRUGS (4)
  1. NAPROXEN [Suspect]
     Indication: ARTHRALGIA
     Dosage: 500 MG BID -PT TOOK MORE- PO
     Route: 048
  2. GABAPENTIN [Concomitant]
  3. ALLOPURINOL [Concomitant]
  4. SERTRALINE [Concomitant]

REACTIONS (8)
  - ARTHRALGIA [None]
  - BLOOD PRESSURE DECREASED [None]
  - DIZZINESS [None]
  - EROSIVE DUODENITIS [None]
  - FAECES DISCOLOURED [None]
  - GASTRITIS EROSIVE [None]
  - OCCULT BLOOD POSITIVE [None]
  - PAIN IN EXTREMITY [None]
